FAERS Safety Report 20820080 (Version 1)
Quarter: 2022Q2

REPORT INFORMATION
  Report Type: Spontaneous
  Country: US (occurrence: None)
  Receive Date: 20220512
  Receipt Date: 20220512
  Transmission Date: 20220721
  Serious: No
  Sender: FDA-Public Use
  Company Number: None

PATIENT
  Age: 84 Year
  Sex: Female
  Weight: 71.71 kg

DRUGS (10)
  1. CAPECITABINE [Suspect]
     Active Substance: CAPECITABINE
     Indication: Hepatobiliary cancer
     Dosage: FREQUENCY : TWICE A DAY;?
     Route: 048
     Dates: start: 20220420
  2. CAPECITABINE [Suspect]
     Active Substance: CAPECITABINE
     Indication: Hepatobiliary cancer
     Dosage: FREQUENCY : TWICE A DAY;?
     Route: 048
     Dates: start: 20220420
  3. ASPIRIN [Concomitant]
     Active Substance: ASPIRIN
  4. SENNA [Concomitant]
     Active Substance: SENNA LEAF\SENNOSIDES\SENNOSIDES A AND B
  5. IBUPROFEN [Concomitant]
     Active Substance: IBUPROFEN
  6. METHOCARBAMOL [Concomitant]
     Active Substance: METHOCARBAMOL
  7. VITAMINS [Concomitant]
     Active Substance: VITAMINS
  8. NARCAN [Concomitant]
     Active Substance: NALOXONE HYDROCHLORIDE
  9. ONDANSETRON [Concomitant]
     Active Substance: ONDANSETRON
  10. OXYCODONE [Concomitant]
     Active Substance: OXYCODONE

REACTIONS (1)
  - Palliative care [None]
